FAERS Safety Report 12161692 (Version 1)
Quarter: 2016Q1

REPORT INFORMATION
  Report Type: Spontaneous
  Country: US (occurrence: US)
  Receive Date: 20160309
  Receipt Date: 20160309
  Transmission Date: 20160526
  Serious: Yes (Other)
  Sender: FDA-Public Use
  Company Number: US-BEH-2016059473

PATIENT
  Sex: Female
  Weight: 92 kg

DRUGS (17)
  1. SODIUM CHLORIDE. [Concomitant]
     Active Substance: SODIUM CHLORIDE
  2. FLUTICASONE [Concomitant]
     Active Substance: FLUTICASONE\FLUTICASONE PROPIONATE
  3. MULTIVITAMINS [Concomitant]
     Active Substance: VITAMINS
  4. VIVELLE-DOT [Concomitant]
     Active Substance: ESTRADIOL
  5. GABAPENTIN. [Concomitant]
     Active Substance: GABAPENTIN
  6. EPIPEN [Concomitant]
     Active Substance: EPINEPHRINE
  7. OMEGA-3 ACIDS [Concomitant]
     Active Substance: OMEGA-3 FATTY ACIDS
  8. TOPROL XL [Concomitant]
     Active Substance: METOPROLOL SUCCINATE
  9. HYOSCYAMINE. [Concomitant]
     Active Substance: HYOSCYAMINE
  10. QVAR [Concomitant]
     Active Substance: BECLOMETHASONE DIPROPIONATE
  11. LISINOPRIL. [Concomitant]
     Active Substance: LISINOPRIL
  12. TYLENOL WITH CODEINE [Concomitant]
     Active Substance: ACETAMINOPHEN\CODEINE PHOSPHATE
  13. PROPAFENONE. [Concomitant]
     Active Substance: PROPAFENONE
  14. ZEMAIRA [Suspect]
     Active Substance: .ALPHA.1-PROTEINASE INHIBITOR HUMAN
     Indication: ALPHA-1 ANTI-TRYPSIN DEFICIENCY
     Dosage: 953 MG VIALS
     Route: 042
  15. DIPHENHYDRAMINE. [Concomitant]
     Active Substance: DIPHENHYDRAMINE
  16. HEPARIN [Concomitant]
     Active Substance: HEPARIN SODIUM
  17. RYTHMOL [Concomitant]
     Active Substance: PROPAFENONE HYDROCHLORIDE

REACTIONS (1)
  - Diverticulitis [Unknown]
